FAERS Safety Report 4639135-7 (Version None)
Quarter: 2005Q2

REPORT INFORMATION
  Report Type: 
  Country: None (occurrence: None)
  Receive Date: 20050415
  Receipt Date: 20050415
  Transmission Date: 20051028
  Serious: Yes (Life-Threatening, Other)
  Sender: FDA-Public Use
  Company Number: None

PATIENT
  Age: 73 Year
  Sex: Male
  Weight: 95.2554 kg

DRUGS (1)
  1. BEXTRA [Suspect]
     Indication: RHEUMATOID ARTHRITIS
     Dosage: DAILY BY MOUTH
     Route: 048
     Dates: start: 20020101, end: 20040101

REACTIONS (2)
  - RENAL IMPAIRMENT [None]
  - SINGLE FUNCTIONAL KIDNEY [None]
